FAERS Safety Report 6457281-2 (Version None)
Quarter: 2009Q4

REPORT INFORMATION
  Report Type: 
  Country: None (occurrence: None)
  Receive Date: 20091125
  Receipt Date: 20091113
  Transmission Date: 20100525
  Serious: Yes (Other)
  Sender: FDA-Public Use
  Company Number: JP-PFIZER INC-2009294325

PATIENT
  Age: 69 Year
  Sex: Female

DRUGS (2)
  1. ZOLOFT [Suspect]
     Indication: DEPRESSION
     Dosage: 75 MG/DAY
     Route: 048
     Dates: start: 20090713, end: 20091001
  2. SULPIRIDE [Concomitant]
     Dosage: 100 MG/DAY
     Route: 048
     Dates: start: 20040720

REACTIONS (4)
  - ASTHENIA [None]
  - BLOOD CHLORIDE DECREASED [None]
  - HAEMOGLOBIN DECREASED [None]
  - HYPONATRAEMIA [None]
